FAERS Safety Report 9235127 (Version 2)
Quarter: 2013Q2

REPORT INFORMATION
  Report Type: Spontaneous
  Country: US (occurrence: US)
  Receive Date: 20130416
  Receipt Date: 20130503
  Transmission Date: 20140414
  Serious: Yes (Other)
  Sender: FDA-Public Use
  Company Number: US-TEVA-397863USA

PATIENT
  Sex: Female

DRUGS (1)
  1. FENTORA [Suspect]
     Indication: BREAKTHROUGH PAIN
     Route: 002

REACTIONS (3)
  - Drug withdrawal syndrome [Unknown]
  - Pain [Unknown]
  - Malaise [Unknown]
